FAERS Safety Report 23065412 (Version 3)
Quarter: 2023Q4

REPORT INFORMATION
  Report Type: Report from Study
  Country: US (occurrence: US)
  Receive Date: 20231013
  Receipt Date: 20231030
  Transmission Date: 20240110
  Serious: Yes (Hospitalization)
  Sender: FDA-Public Use
  Company Number: US-Eisai Medical Research-EC-2023-144080

PATIENT
  Age: 67 Year
  Sex: Female

DRUGS (36)
  1. LENVATINIB [Suspect]
     Active Substance: LENVATINIB
     Indication: Ovarian cancer recurrent
     Route: 048
     Dates: start: 20230315, end: 20230905
  2. PEMBROLIZUMAB [Suspect]
     Active Substance: PEMBROLIZUMAB
     Indication: Ovarian cancer recurrent
     Route: 041
     Dates: start: 20230329, end: 20230614
  3. TAXOL [Suspect]
     Active Substance: PACLITAXEL
     Indication: Ovarian cancer recurrent
     Route: 041
     Dates: start: 20230315, end: 20230830
  4. DULOXETINE [Concomitant]
     Active Substance: DULOXETINE
     Dates: start: 2014
  5. GABAPENTIN [Concomitant]
     Active Substance: GABAPENTIN
     Dates: start: 2014
  6. IBUPROFEN [Concomitant]
     Active Substance: IBUPROFEN
     Dates: start: 2014
  7. LIDOCAINE\PRILOCAINE HYDROCHLORIDE [Concomitant]
     Active Substance: LIDOCAINE\PRILOCAINE HYDROCHLORIDE
     Dates: start: 20230227
  8. LISINOPRIL [Concomitant]
     Active Substance: LISINOPRIL
     Dates: start: 20230227
  9. MAGNESIUM OXIDE [Concomitant]
     Active Substance: MAGNESIUM OXIDE
     Dates: start: 20230307
  10. MONTELUKAST [Concomitant]
     Active Substance: MONTELUKAST SODIUM
     Dates: start: 2016
  11. VITAMINS [Concomitant]
     Active Substance: VITAMINS
     Dates: start: 2022
  12. OMEPRAZOLE [Concomitant]
     Active Substance: OMEPRAZOLE
     Dates: start: 202211
  13. PROBIOTICS NOS [Concomitant]
     Active Substance: PROBIOTICS NOS
  14. DEXAMETHASONE [Concomitant]
     Active Substance: DEXAMETHASONE
     Dates: start: 20230316
  15. LOSARTAN [Concomitant]
     Active Substance: LOSARTAN
  16. FAMOTIDINE [Concomitant]
     Active Substance: FAMOTIDINE
  17. KLOR-CON M20 [Concomitant]
     Active Substance: POTASSIUM CHLORIDE
  18. METOPROLOL [Concomitant]
     Active Substance: METOPROLOL
  19. ACETAMINOPHEN [Concomitant]
     Active Substance: ACETAMINOPHEN
  20. PROVENTIL HFA [SALBUTAMOL] [Concomitant]
  21. APIXABAN [Concomitant]
     Active Substance: APIXABAN
  22. CODEINE GUAIFENESIN [Concomitant]
     Active Substance: CODEINE PHOSPHATE\GUAIFENESIN
  23. THIAMINE [Concomitant]
     Active Substance: THIAMINE
  24. AMLODIPINE [Concomitant]
     Active Substance: AMLODIPINE BESYLATE
     Dates: start: 20230306
  25. ASPIRIN [Concomitant]
     Active Substance: ASPIRIN
     Dates: start: 201605
  26. ATORVASTATIN [Concomitant]
     Active Substance: ATORVASTATIN
     Dates: start: 201605
  27. CETIRIZINE [Concomitant]
     Active Substance: CETIRIZINE HYDROCHLORIDE
     Dates: start: 2018
  28. CHOLECALCIFEROL [Concomitant]
     Active Substance: CHOLECALCIFEROL
     Dates: start: 2020
  29. DOCUSATE CALCIUM [Concomitant]
     Active Substance: DOCUSATE CALCIUM
     Dates: start: 2020
  30. DOCUSATE SODIUM  SENNA [Concomitant]
  31. CALCIUM CARBONATE\CHOLECALCIFEROL [Concomitant]
     Active Substance: CALCIUM CARBONATE\CHOLECALCIFEROL
  32. FUROSEMIDE [Concomitant]
     Active Substance: FUROSEMIDE
  33. POLYVINYL ALCOHOL;POVIDONE [Concomitant]
  34. PREDNISONE [Concomitant]
     Active Substance: PREDNISONE
  35. SULFAMETHOXAZOLE\TRIMETHOPRIM [Concomitant]
     Active Substance: SULFAMETHOXAZOLE\TRIMETHOPRIM
  36. ZEJULA [Concomitant]
     Active Substance: NIRAPARIB

REACTIONS (6)
  - Syncope [Recovered/Resolved]
  - Embolism [Recovering/Resolving]
  - Hyperkalaemia [Recovered/Resolved]
  - Anaemia [Recovering/Resolving]
  - Acute kidney injury [Recovering/Resolving]
  - Epistaxis [Recovered/Resolved]

NARRATIVE: CASE EVENT DATE: 20230703
